FAERS Safety Report 11873611 (Version 1)
Quarter: 2015Q4

REPORT INFORMATION
  Report Type: Spontaneous
  Country: US (occurrence: US)
  Receive Date: 20151228
  Receipt Date: 20151228
  Transmission Date: 20160305
  Serious: No
  Sender: FDA-Public Use
  Company Number: US-BIOGEN-2015BI00162180

PATIENT
  Sex: Female

DRUGS (1)
  1. AVONEX [Suspect]
     Active Substance: INTERFERON BETA-1A
     Indication: RELAPSING-REMITTING MULTIPLE SCLEROSIS
     Route: 065

REACTIONS (5)
  - Vulvovaginal hypoaesthesia [Unknown]
  - Multiple sclerosis relapse [Unknown]
  - Motor dysfunction [Unknown]
  - Hypoaesthesia [Unknown]
  - Drug ineffective [Unknown]
